FAERS Safety Report 23868788 (Version 1)
Quarter: 2024Q2

REPORT INFORMATION
  Report Type: Spontaneous
  Country: US (occurrence: None)
  Receive Date: 20240516
  Receipt Date: 20240516
  Transmission Date: 20240716
  Serious: Yes (Hospitalization, Other)
  Sender: FDA-Public Use
  Company Number: None

PATIENT
  Age: 7 Year
  Sex: Male
  Weight: 39.6 kg

DRUGS (1)
  1. ASPARLAS [Suspect]
     Active Substance: CALASPARGASE PEGOL-MKNL
     Indication: Leukaemia
     Route: 042
     Dates: start: 20240429

REACTIONS (2)
  - Hypertriglyceridaemia [None]
  - Hyperbilirubinaemia [None]

NARRATIVE: CASE EVENT DATE: 20240513
